FAERS Safety Report 17501587 (Version 3)
Quarter: 2021Q1

REPORT INFORMATION
  Report Type: Spontaneous
  Country: US (occurrence: US)
  Receive Date: 20200305
  Receipt Date: 20210222
  Transmission Date: 20210419
  Serious: Yes (Other)
  Sender: FDA-Public Use
  Company Number: US-PFIZER INC-2020058338

PATIENT
  Age: 65 Year
  Sex: Male

DRUGS (1)
  1. XELJANZ [Suspect]
     Active Substance: TOFACITINIB CITRATE
     Indication: ECZEMA
     Dosage: 5 MG, 2X/DAY
     Route: 048

REACTIONS (5)
  - Intestinal perforation [Unknown]
  - Off label use [Unknown]
  - Rash [Unknown]
  - Carpal tunnel syndrome [Unknown]
  - Dermatitis allergic [Unknown]
